FAERS Safety Report 18980795 (Version 1)
Quarter: 2021Q1

REPORT INFORMATION
  Report Type: Spontaneous
  Country: GB (occurrence: GB)
  Receive Date: 20210308
  Receipt Date: 20210308
  Transmission Date: 20210420
  Serious: Yes (Death, Life-Threatening, Other)
  Sender: FDA-Public Use
  Company Number: GB-PFIZER INC-2021217541

PATIENT
  Age: 79 Year
  Sex: Male
  Weight: 79 kg

DRUGS (27)
  1. COTRIMOXAZOLE [Concomitant]
     Active Substance: SULFAMETHOXAZOLE\TRIMETHOPRIM
  2. LEUPRORELIN ACETATE [Concomitant]
     Active Substance: LEUPROLIDE ACETATE
  3. OXYCODONE HYDROCHLORIDE. [Concomitant]
     Active Substance: OXYCODONE HYDROCHLORIDE
  4. PARACETAMOL [Concomitant]
     Active Substance: ACETAMINOPHEN
  5. THIAMINE. [Concomitant]
     Active Substance: THIAMINE
  6. VANCOMYCIN HYDROCHLORIDE. [Concomitant]
     Active Substance: VANCOMYCIN HYDROCHLORIDE
  7. ENOXAPARIN SODIUM. [Concomitant]
     Active Substance: ENOXAPARIN SODIUM
  8. LANSOPRAZOLE. [Concomitant]
     Active Substance: LANSOPRAZOLE
  9. TEMOCILLIN [Concomitant]
     Active Substance: TEMOCILLIN
  10. SENNA [SENNOSIDE A+B] [Concomitant]
     Active Substance: SENNOSIDES A AND B
  11. DAPTOMYCIN. [Suspect]
     Active Substance: DAPTOMYCIN
     Indication: ENTEROCOCCAL INFECTION
     Dosage: 850MG
     Route: 042
     Dates: start: 20201204, end: 20201218
  12. FUROSEMIDE. [Concomitant]
     Active Substance: FUROSEMIDE
  13. GENTAMICIN. [Concomitant]
     Active Substance: GENTAMICIN
  14. METHYLPREDNISOLONE. [Concomitant]
     Active Substance: METHYLPREDNISOLONE
  15. SANDO K [POTASSIUM BICARBONATE;POTASSIUM CHLORIDE] [Concomitant]
     Active Substance: POTASSIUM BICARBONATE\POTASSIUM CHLORIDE
  16. CALCICHEW [Concomitant]
     Active Substance: CALCIUM CARBONATE
  17. DOXYCYCLINE HYDROCHLORIDE [Concomitant]
     Active Substance: DOXYCYCLINE HYDROCHLORIDE
     Indication: PNEUMONIA
  18. FOLIC ACID. [Concomitant]
     Active Substance: FOLIC ACID
  19. RIFAMPICIN [Concomitant]
     Active Substance: RIFAMPIN
  20. LACTULOSE. [Concomitant]
     Active Substance: LACTULOSE
  21. MEROPENEM. [Concomitant]
     Active Substance: MEROPENEM
  22. FERROUS FUMARATE [Concomitant]
     Active Substance: FERROUS FUMARATE
  23. LINEZOLID. [Concomitant]
     Active Substance: LINEZOLID
  24. TAMSULOSIN [Concomitant]
     Active Substance: TAMSULOSIN
  25. TIGECYCLINE. [Concomitant]
     Active Substance: TIGECYCLINE
  26. ALENDRONIC ACID [Concomitant]
     Active Substance: ALENDRONIC ACID
  27. PROCHLORPERAZINE MALEATE. [Concomitant]
     Active Substance: PROCHLORPERAZINE MALEATE

REACTIONS (2)
  - Eosinophilic pneumonia acute [Fatal]
  - Enterococcal infection [Fatal]

NARRATIVE: CASE EVENT DATE: 202012
